FAERS Safety Report 5870427-X (Version None)
Quarter: 2008Q3

REPORT INFORMATION
  Report Type: 
  Country: None (occurrence: None)
  Receive Date: 20080904
  Receipt Date: 20080627
  Transmission Date: 20090109
  Serious: Yes (Other)
  Sender: FDA-Public Use
  Company Number: US-BRISTOL-MYERS SQUIBB COMPANY-14200216

PATIENT
  Age: 50 Year
  Sex: Male

DRUGS (10)
  1. DEFINITY [Suspect]
     Indication: STRESS ECHOCARDIOGRAM
     Dosage: 2 CC OF CONTRAST AT EVERY STAGE OF STRESS ECHO.
     Route: 042
     Dates: start: 20080520, end: 20080520
  2. NITROGLYCERIN [Concomitant]
  3. ASPIRIN [Concomitant]
  4. PLAVIX [Concomitant]
  5. ZOCOR [Concomitant]
  6. MOBIC [Concomitant]
  7. LOPRESSOR [Concomitant]
  8. HYDROCHLOROTHIAZIDE [Concomitant]
  9. CATAPRES [Concomitant]
  10. COMPAZINE [Concomitant]

REACTIONS (1)
  - BACK PAIN [None]
